FAERS Safety Report 14146857 (Version 3)
Quarter: 2018Q3

REPORT INFORMATION
  Report Type: Report from Study
  Country: JP (occurrence: JP)
  Receive Date: 20171031
  Receipt Date: 20180821
  Transmission Date: 20181010
  Serious: Yes (Hospitalization, Disabling)
  Sender: FDA-Public Use
  Company Number: JP-DSJP-DSJ-2017-126344

PATIENT

DRUGS (54)
  1. PRASUGREL. [Suspect]
     Active Substance: PRASUGREL
     Indication: ANGINA PECTORIS
     Dosage: 20 MG, QD
     Route: 048
     Dates: start: 20161012, end: 20161012
  2. BAYASPIRIN [Concomitant]
     Active Substance: ASPIRIN
     Dosage: 100MG/DAY
     Route: 048
     Dates: end: 20161201
  3. HUMULIN R [Concomitant]
     Active Substance: INSULIN HUMAN
     Dosage: UNK
     Route: 058
     Dates: start: 20170413, end: 20170423
  4. HALCION [Concomitant]
     Active Substance: TRIAZOLAM
     Dosage: UNK
     Route: 048
     Dates: end: 20170424
  5. NEO?MEDROL                         /00259601/ [Concomitant]
     Dosage: UNK
     Route: 050
     Dates: start: 20170524
  6. PRASUGREL. [Suspect]
     Active Substance: PRASUGREL
     Dosage: 2.5 MG, QD
     Route: 048
     Dates: start: 20161013
  7. CALONAL [Concomitant]
     Active Substance: ACETAMINOPHEN
     Dosage: UNK
     Route: 048
  8. ZOLPIDEM TARTRATE. [Concomitant]
     Active Substance: ZOLPIDEM TARTRATE
     Dosage: UNK
     Route: 048
  9. ISODINE [Concomitant]
     Active Substance: POVIDONE-IODINE
     Dosage: UNK
     Route: 050
     Dates: start: 20170529, end: 20170601
  10. LIXIANA TABLETS [Suspect]
     Active Substance: EDOXABAN TOSYLATE
     Indication: PRODUCT USED FOR UNKNOWN INDICATION
     Dosage: 30MG/DAY
     Route: 048
     Dates: start: 20161202, end: 20170904
  11. GENTACIN [Concomitant]
     Active Substance: GENTAMICIN SULFATE
     Dosage: UNK
     Route: 050
     Dates: start: 20161222
  12. PENTAGIN INJECTION [Concomitant]
     Dosage: UNK
     Route: 030
     Dates: start: 20170518, end: 20170518
  13. HIRUDOID [Concomitant]
     Active Substance: GLYCOSAMINOGLYCANS
     Dosage: UNK
     Route: 050
     Dates: start: 20161222
  14. GENTAMICIN SULFATE. [Concomitant]
     Active Substance: GENTAMICIN SULFATE
     Dosage: UNK
     Route: 050
     Dates: start: 20170424
  15. TELEMINSOFT [Concomitant]
     Active Substance: BISACODYL
     Dosage: UNK
     Route: 050
  16. TRAMCET [Concomitant]
     Active Substance: ACETAMINOPHEN\TRAMADOL
     Dosage: UNK
     Route: 048
  17. SP TROCHE [Concomitant]
     Active Substance: DEQUALINIUM CHLORIDE
     Dosage: UNK
     Route: 048
     Dates: start: 20170529, end: 20170601
  18. ACELIO [Concomitant]
     Active Substance: ACETAMINOPHEN
     Dosage: UNK
     Route: 042
     Dates: start: 20170518, end: 20170518
  19. ANTEBATE [Concomitant]
     Active Substance: BETAMETHASONE DIPROPIONATE
     Dosage: UNK
     Route: 050
     Dates: start: 20161222
  20. HIRUDOID [Concomitant]
     Active Substance: GLYCOSAMINOGLYCANS
     Dosage: UNK
     Route: 050
     Dates: start: 20170508
  21. TAKECAB [Concomitant]
     Active Substance: VONOPRAZAN FUMURATE
     Dosage: UNK
     Route: 048
     Dates: start: 20170419, end: 20170423
  22. ELIETEN                            /00041901/ [Concomitant]
     Active Substance: METOCLOPRAMIDE
     Dosage: UNK
     Route: 048
     Dates: start: 20170417, end: 20170418
  23. HYALEIN [Concomitant]
     Active Substance: HYALURONATE SODIUM
     Dosage: UNK
     Route: 050
     Dates: start: 20170502, end: 20170524
  24. NIFEDIPINE. [Concomitant]
     Active Substance: NIFEDIPINE
     Dosage: UNK
     Route: 048
     Dates: start: 20170523, end: 20170607
  25. PATANOL [Concomitant]
     Active Substance: OLOPATADINE HYDROCHLORIDE
     Dosage: UNK
     Route: 050
     Dates: start: 20170524
  26. NEXIUM [Concomitant]
     Active Substance: ESOMEPRAZOLE MAGNESIUM
     Dosage: 20MG/DAY
     Route: 048
  27. HEPARIN [Concomitant]
     Active Substance: HEPARIN SODIUM
     Dosage: 3000 IU, UNK
     Route: 065
  28. GENTACIN [Concomitant]
     Active Substance: GENTAMICIN SULFATE
     Dosage: UNK
     Route: 050
     Dates: start: 20170518
  29. ATARAX?P                           /00058402/ [Concomitant]
     Active Substance: HYDROXYZINE HYDROCHLORIDE
     Dosage: UNK
     Route: 030
     Dates: start: 20170518, end: 20170518
  30. NIKORANMART [Concomitant]
     Active Substance: NICORANDIL
     Dosage: UNK
     Route: 048
  31. CRAVIT [Concomitant]
     Active Substance: LEVOFLOXACIN
     Dosage: UNK
     Route: 050
     Dates: start: 20170524
  32. VANCOMYCIN HYDROCHLORIDE. [Concomitant]
     Active Substance: VANCOMYCIN HYDROCHLORIDE
     Dosage: UNK
     Route: 041
     Dates: start: 20170518
  33. ZOLPIDEM TARTRATE. [Concomitant]
     Active Substance: ZOLPIDEM TARTRATE
     Dosage: UNK
     Route: 048
     Dates: start: 20170425
  34. CUBICIN [Concomitant]
     Active Substance: DAPTOMYCIN
     Dosage: UNK
     Route: 042
     Dates: start: 20161222
  35. RINDERON VG [Concomitant]
     Active Substance: BETAMETHASONE VALERATE\GENTAMICIN SULFATE
     Dosage: UNK
     Route: 050
     Dates: start: 20161202
  36. NOVORAPID [Concomitant]
     Active Substance: INSULIN ASPART
     Dosage: UNK
     Route: 058
     Dates: start: 20161202
  37. ROPION [Concomitant]
     Active Substance: FLURBIPROFEN AXETIL
     Dosage: UNK
     Route: 042
     Dates: start: 20170518
  38. FENTANYL                           /00174602/ [Concomitant]
     Active Substance: FENTANYL
     Dosage: UNK
     Route: 042
     Dates: start: 20170518, end: 20170518
  39. OLOPATADINE HYDROCHLORIDE. [Concomitant]
     Active Substance: OLOPATADINE HYDROCHLORIDE
     Dosage: UNK
     Route: 048
  40. EPHEDRIN [Concomitant]
     Active Substance: EPHEDRINE HYDROCHLORIDE
     Dosage: UNK
     Route: 042
     Dates: start: 20161222, end: 20161222
  41. TRAZENTA [Concomitant]
     Active Substance: LINAGLIPTIN
     Dosage: UNK
     Route: 048
  42. GENTAMICIN SULFATE. [Concomitant]
     Active Substance: GENTAMICIN SULFATE
     Dosage: UNK
     Route: 050
     Dates: start: 20170425
  43. HALCION [Concomitant]
     Active Substance: TRIAZOLAM
     Dosage: UNK
     Route: 048
  44. NOVORAPID [Concomitant]
     Active Substance: INSULIN ASPART
     Dosage: UNK
     Route: 058
     Dates: start: 20170424
  45. TRAMCET [Concomitant]
     Active Substance: ACETAMINOPHEN\TRAMADOL
     Dosage: UNK
     Route: 048
     Dates: start: 20161216, end: 20161216
  46. POPIYODON [Concomitant]
     Dosage: UNK
     Route: 050
     Dates: end: 20161202
  47. NIFEDIPINE. [Concomitant]
     Active Substance: NIFEDIPINE
     Dosage: UNK
     Route: 048
  48. MIYA?BM [Concomitant]
     Active Substance: CLOSTRIDIUM BUTYRICUM SPORES STRAIN M-55
     Dosage: UNK
     Route: 048
  49. ATORVASTATIN                       /01326102/ [Concomitant]
     Active Substance: ATORVASTATIN
     Dosage: UNK
     Route: 048
  50. METHYCOBAL [Concomitant]
     Active Substance: METHYLCOBALAMIN
     Dosage: UNK
     Route: 048
  51. ARCRANE [Concomitant]
     Dosage: UNK
     Route: 048
     Dates: start: 20170419, end: 20170423
  52. VOGLIBOSE [Concomitant]
     Active Substance: VOGLIBOSE
     Dosage: UNK
     Route: 048
     Dates: start: 20161109, end: 20161209
  53. BROMELAIN [Concomitant]
     Active Substance: BROMELAINS
     Dosage: UNK
     Route: 050
     Dates: start: 20161211, end: 20161220
  54. WHITE PETROLATUM [Concomitant]
     Active Substance: PETROLATUM
     Dosage: UNK
     Route: 050
     Dates: start: 20161211, end: 20161220

REACTIONS (7)
  - Dry gangrene [Not Recovered/Not Resolved]
  - Joint contracture [Recovered/Resolved with Sequelae]
  - Extremity necrosis [Recovered/Resolved with Sequelae]
  - Nausea [Recovering/Resolving]
  - Peripheral ischaemia [Recovering/Resolving]
  - Extremity necrosis [Recovered/Resolved with Sequelae]
  - Melaena [Recovered/Resolved]

NARRATIVE: CASE EVENT DATE: 20161128
